FAERS Safety Report 9216839 (Version 1)
Quarter: 2013Q2

REPORT INFORMATION
  Report Type: Spontaneous
  Country: CA (occurrence: CA)
  Receive Date: 20130408
  Receipt Date: 20130408
  Transmission Date: 20140414
  Serious: Yes (Other)
  Sender: FDA-Public Use
  Company Number: CA-PFIZER INC-2013109306

PATIENT
  Sex: Female

DRUGS (2)
  1. EFFEXOR [Suspect]
     Dosage: 75 MG, UNK
  2. EFFEXOR [Suspect]
     Dosage: 37.5 MG, UNK

REACTIONS (5)
  - Multiple sclerosis [Unknown]
  - Eye disorder [Unknown]
  - Paraesthesia [Unknown]
  - Feeling abnormal [Unknown]
  - Back pain [Unknown]
